FAERS Safety Report 4675650-8 (Version None)
Quarter: 2005Q2

REPORT INFORMATION
  Report Type: 
  Country: None (occurrence: None)
  Receive Date: 20050527
  Receipt Date: 20050523
  Transmission Date: 20051028
  Serious: Yes (Other)
  Sender: FDA-Public Use
  Company Number: US-BRISTOL-MYERS SQUIBB COMPANY-12984613

PATIENT

DRUGS (2)
  1. SUSTIVA [Suspect]
  2. ZERIT [Suspect]

REACTIONS (3)
  - CEREBROVASCULAR ACCIDENT [None]
  - LIPODYSTROPHY ACQUIRED [None]
  - VISUAL ACUITY REDUCED [None]
